FAERS Safety Report 11479850 (Version 1)
Quarter: 2015Q3

REPORT INFORMATION
  Report Type: Spontaneous
  Country: CA (occurrence: CA)
  Receive Date: 20150909
  Receipt Date: 20150909
  Transmission Date: 20151125
  Serious: Yes (Hospitalization, Other)
  Sender: FDA-Public Use
  Company Number: CA-TEVA-592023ACC

PATIENT
  Age: 7 Year
  Sex: Female
  Weight: 21 kg

DRUGS (33)
  1. CEFAZOLIN FOR INJECTION, USP [Concomitant]
     Active Substance: CEFAZOLIN SODIUM
     Route: 030
  2. DOCUSATE [Concomitant]
     Active Substance: DOCUSATE
  3. ETOPOSIDE INJECTION, USP [Concomitant]
     Active Substance: ETOPOSIDE
  4. GRANULOCYTE COLONY STIMULATING FACTOR (G-CSF) [Concomitant]
  5. TRIMETHOPRIM-SULFAMETHOXAZOLE [Concomitant]
     Active Substance: SULFAMETHOXAZOLE\TRIMETHOPRIM
  6. AMOXICILLIN/CLAVULANIC ACID [Concomitant]
     Active Substance: AMOXICILLIN\CLAVULANIC ACID
  7. CEFPROZIL. [Concomitant]
     Active Substance: CEFPROZIL
  8. RANITIDINE [Concomitant]
     Active Substance: RANITIDINE\RANITIDINE HYDROCHLORIDE
  9. SENNOSIDES. [Concomitant]
     Active Substance: SENNOSIDES
  10. TOBRAMYCIN INJECTION USP [Concomitant]
  11. CYCLOPHOSPHAMIDE. [Concomitant]
     Active Substance: CYCLOPHOSPHAMIDE
  12. FLUCONAZOLE. [Concomitant]
     Active Substance: FLUCONAZOLE
  13. MORPHINE [Concomitant]
     Active Substance: MORPHINE
  14. PHENAZOPYRIDINE HCL [Concomitant]
     Active Substance: PHENAZOPYRIDINE HYDROCHLORIDE
  15. TIMENTIN [Concomitant]
     Active Substance: CLAVULANATE POTASSIUM\TICARCILLIN DISODIUM
     Route: 042
  16. AMITRIPTYLINE [Concomitant]
     Active Substance: AMITRIPTYLINE
  17. CODEINE [Concomitant]
     Active Substance: CODEINE
  18. VANCOMYCIN [Concomitant]
     Active Substance: VANCOMYCIN
  19. LORAZEPAM. [Concomitant]
     Active Substance: LORAZEPAM
  20. METOCLOPRAMIDE. [Concomitant]
     Active Substance: METOCLOPRAMIDE
  21. CISPLATIN INJECTION [Concomitant]
     Active Substance: CISPLATIN
     Route: 042
  22. CYPROHEPTADINE HYDROCHLORIDE TABLET USP [Concomitant]
  23. FUROSEMIDE. [Concomitant]
     Active Substance: FUROSEMIDE
  24. VINCRISTINE SULFATE INJECTION USP [Suspect]
     Active Substance: VINCRISTINE SULFATE
     Indication: MEDULLOBLASTOMA
     Route: 042
  25. AMOXICILLIN. [Concomitant]
     Active Substance: AMOXICILLIN
  26. CLARITHROMYCIN. [Concomitant]
     Active Substance: CLARITHROMYCIN
  27. DEXAMETHASONE. [Concomitant]
     Active Substance: DEXAMETHASONE
  28. DIMENHYDRINATE. [Concomitant]
     Active Substance: DIMENHYDRINATE
  29. MESNA. [Concomitant]
     Active Substance: MESNA
  30. ONDANSETRON [Concomitant]
     Active Substance: ONDANSETRON
  31. ACETAMINOPHEN. [Concomitant]
     Active Substance: ACETAMINOPHEN
  32. CIPROFLOXACIN. [Concomitant]
     Active Substance: CIPROFLOXACIN
  33. LACTULOSE SYRUP [Concomitant]

REACTIONS (1)
  - Eyelid ptosis [Recovered/Resolved]
